FAERS Safety Report 15701494 (Version 1)
Quarter: 2018Q4

REPORT INFORMATION
  Report Type: Spontaneous
  Country: CN (occurrence: CN)
  Receive Date: 20181207
  Receipt Date: 20181207
  Transmission Date: 20190205
  Serious: Yes (Hospitalization)
  Sender: FDA-Public Use
  Company Number: CN-BAXTER-2018BAX029528

PATIENT
  Age: 62 Year
  Sex: Female
  Weight: 55 kg

DRUGS (6)
  1. METRONIDAZOLE AND SODIUM CHLORIDE INJECTION [Suspect]
     Active Substance: METRONIDAZOLE\SODIUM CHLORIDE
     Indication: CHOLELITHIASIS
  2. EXACIN [Suspect]
     Active Substance: ISEPAMICIN
     Indication: CHOLECYSTITIS
     Dosage: IV GTT QD
     Route: 041
     Dates: start: 20180928, end: 20181003
  3. METRONIDAZOLE AND SODIUM CHLORIDE INJECTION [Suspect]
     Active Substance: METRONIDAZOLE\SODIUM CHLORIDE
     Indication: CHOLECYSTITIS
     Dosage: IV GTT (BID)
     Route: 041
     Dates: start: 20180928, end: 20181003
  4. EXACIN [Suspect]
     Active Substance: ISEPAMICIN
     Indication: ANTI-INFECTIVE THERAPY
  5. EXACIN [Suspect]
     Active Substance: ISEPAMICIN
     Indication: CHOLELITHIASIS
  6. METRONIDAZOLE AND SODIUM CHLORIDE INJECTION [Suspect]
     Active Substance: METRONIDAZOLE\SODIUM CHLORIDE
     Indication: ANTI-INFECTIVE THERAPY

REACTIONS (1)
  - Hepatic function abnormal [Recovering/Resolving]

NARRATIVE: CASE EVENT DATE: 20180930
